FAERS Safety Report 5369929-4 (Version None)
Quarter: 2007Q2

REPORT INFORMATION
  Report Type: 
  Country: None (occurrence: None)
  Receive Date: 20070621
  Receipt Date: 20070611
  Transmission Date: 20071010
  Serious: Yes (Disabling)
  Sender: FDA-Public Use
  Company Number: OSCN-PR-0706S-0247

PATIENT
  Age: 54 Year
  Sex: Male

DRUGS (1)
  1. OMNISCAN [Suspect]
     Indication: INTERMITTENT CLAUDICATION
     Dosage: 35 ML, SINGLE DOSE, I.V.
     Route: 042
     Dates: start: 20050401, end: 20050401

REACTIONS (8)
  - DRUG INEFFECTIVE [None]
  - FALL [None]
  - JOINT RANGE OF MOTION DECREASED [None]
  - MUSCLE CONTRACTURE [None]
  - MUSCULAR WEAKNESS [None]
  - NEPHROGENIC FIBROSING DERMOPATHY [None]
  - PURPURA [None]
  - SYSTEMIC SCLEROSIS [None]
